FAERS Safety Report 6477072-6 (Version None)
Quarter: 2009Q4

REPORT INFORMATION
  Report Type: 
  Country: None (occurrence: None)
  Receive Date: 20091202
  Receipt Date: 20091117
  Transmission Date: 20100525
  Serious: Yes (Hospitalization)
  Sender: FDA-Public Use
  Company Number: 8054846

PATIENT
  Age: 54 Year
  Sex: Male

DRUGS (13)
  1. KEPPRA [Suspect]
     Dosage: 500 MG 2/D PO
     Route: 048
  2. ANDROGEL [Concomitant]
  3. ASPIRIN [Concomitant]
  4. CALCIUM [Concomitant]
  5. CIPROFLOXACIN [Concomitant]
  6. DDAVP [Concomitant]
  7. FLOMAX [Concomitant]
  8. PANTOPRAZOLE [Concomitant]
  9. PHOSPHATE [Concomitant]
  10. PREDNISONE [Concomitant]
  11. SERAX [Concomitant]
  12. SYNTHROID [Concomitant]
  13. VITAMIN D [Concomitant]

REACTIONS (1)
  - THROMBOCYTOPENIA [None]
